FAERS Safety Report 15378390 (Version 2)
Quarter: 2018Q4

REPORT INFORMATION
  Report Type: Spontaneous
  Country: US (occurrence: US)
  Receive Date: 20180913
  Receipt Date: 20181204
  Transmission Date: 20190204
  Serious: No
  Sender: FDA-Public Use
  Company Number: US-009507513-1809USA005158

PATIENT
  Sex: Male
  Weight: 91.61 kg

DRUGS (1)
  1. KEYTRUDA [Suspect]
     Active Substance: PEMBROLIZUMAB
     Indication: METASTATIC MALIGNANT MELANOMA
     Dosage: UNK, Q3W
     Route: 042
     Dates: start: 20180104, end: 201807

REACTIONS (3)
  - Rash [Unknown]
  - Skin depigmentation [Not Recovered/Not Resolved]
  - Scab [Recovering/Resolving]

NARRATIVE: CASE EVENT DATE: 2018
